FAERS Safety Report 9646288 (Version 5)
Quarter: 2014Q2

REPORT INFORMATION
  Report Type: Spontaneous
  Country: US (occurrence: US)
  Receive Date: 20131025
  Receipt Date: 20140404
  Transmission Date: 20141212
  Serious: Yes (Other)
  Sender: FDA-Public Use
  Company Number: CHPA2013US016009

PATIENT
  Age: 80 Year
  Sex: Female

DRUGS (10)
  1. VOLTAREN GEL [Suspect]
     Indication: OSTEOARTHRITIS
     Dosage: DAB SIZE OF A PEA, QHS
     Route: 061
  2. VOLTAREN GEL [Suspect]
     Indication: MUSCULOSKELETAL PAIN
     Dosage: UNK, UNK
     Route: 061
  3. VOLTAREN GEL [Suspect]
     Indication: OFF LABEL USE
     Dosage: UNK, UNK
     Route: 061
  4. VOLTAREN GEL [Suspect]
     Indication: MUSCLE SPASMS
     Dosage: UNK, UNK
     Route: 061
  5. VOLTAREN GEL [Suspect]
     Indication: OFF LABEL USE
     Dosage: UNK, UNK
     Route: 061
  6. VOLTAREN GEL [Suspect]
     Indication: ERYTHEMA
  7. VOLTAREN GEL [Suspect]
     Indication: OFF LABEL USE
  8. VOLTAREN GEL [Suspect]
     Indication: JOINT SWELLING
  9. VOLTAREN GEL [Suspect]
     Indication: OFF LABEL USE
  10. VOLTAREN GEL [Suspect]
     Indication: ARTHRITIS

REACTIONS (7)
  - Hypothyroidism [Not Recovered/Not Resolved]
  - Erythema [Not Recovered/Not Resolved]
  - Joint swelling [Not Recovered/Not Resolved]
  - Musculoskeletal pain [Not Recovered/Not Resolved]
  - Underdose [Unknown]
  - Therapeutic response changed [Unknown]
  - Drug administered at inappropriate site [Unknown]
